FAERS Safety Report 4967198-8 (Version None)
Quarter: 2006Q2

REPORT INFORMATION
  Report Type: 
  Country: None (occurrence: None)
  Receive Date: 20060410
  Receipt Date: 20060223
  Transmission Date: 20061013
  Serious: Yes (Death, Other)
  Sender: FDA-Public Use
  Company Number: FR-BRISTOL-MYERS SQUIBB COMPANY-13295407

PATIENT
  Age: 38 Year
  Sex: Female
  Weight: 91 kg

DRUGS (4)
  1. ABILIFY [Suspect]
     Indication: SCHIZOPHRENIA
     Route: 048
     Dates: start: 20060109, end: 20060219
  2. DEPAMIDE [Concomitant]
     Indication: AFFECTIVE DISORDER
     Route: 048
     Dates: start: 20030615, end: 20060219
  3. RISPERDAL [Concomitant]
     Indication: HALLUCINATION, AUDITORY
     Route: 048
     Dates: start: 20030615, end: 20060123
  4. RISPERDAL [Concomitant]
     Indication: PERSECUTORY DELUSION
     Route: 048
     Dates: start: 20030615, end: 20060123

REACTIONS (2)
  - COMPLETED SUICIDE [None]
  - OVERDOSE [None]
